FAERS Safety Report 6902424-7 (Version None)
Quarter: 2010Q3

REPORT INFORMATION
  Report Type: 
  Country: None (occurrence: None)
  Receive Date: 20100802
  Receipt Date: 20100802
  Transmission Date: 20110219
  Serious: Yes (Hospitalization)
  Sender: FDA-Public Use
  Company Number: None

PATIENT
  Age: 46 Year
  Sex: Female
  Weight: 90 kg

DRUGS (1)
  1. PRAVASTATIN [Suspect]
     Indication: HYPERLIPIDAEMIA
     Dosage: 20 MG EVERY DAY PO
     Route: 048
     Dates: start: 20091204, end: 20100714

REACTIONS (8)
  - HYPERSENSITIVITY [None]
  - HYPOAESTHESIA [None]
  - LIP SWELLING [None]
  - OCULAR ICTERUS [None]
  - PAIN IN EXTREMITY [None]
  - PORPHYRIA [None]
  - PRURITUS [None]
  - URTICARIA [None]
